FAERS Safety Report 18664209 (Version 6)
Quarter: 2022Q3

REPORT INFORMATION
  Report Type: Spontaneous
  Country: GB (occurrence: GB)
  Receive Date: 20201225
  Receipt Date: 20220915
  Transmission Date: 20221026
  Serious: Yes (Other)
  Sender: FDA-Public Use
  Company Number: GB-BIOVITRUM-2020GB7865

PATIENT
  Age: 51 Year
  Sex: Male

DRUGS (36)
  1. ORFADIN [Suspect]
     Active Substance: NITISINONE
     Indication: Alkaptonuria
     Dosage: 2 MG
     Dates: start: 2014
  2. CO-CODAMOL 30 [Concomitant]
     Dosage: 30/500 ONE TABLET QDS
  3. ALENDRONIC ACID [Concomitant]
     Active Substance: ALENDRONIC ACID
     Dosage: 70 MG
  4. ERGOCALCIFEROL [Concomitant]
     Active Substance: ERGOCALCIFEROL
     Dosage: 5000 UNITS
  5. GLUCOSAMINE [Concomitant]
     Active Substance: GLUCOSAMINE
     Dosage: 1.5 G
  6. CHONDROITIN [FERROPOLICHONDRUM] [Concomitant]
     Dosage: 1.2 G
  7. TRAMADOL [Concomitant]
     Active Substance: TRAMADOL
     Dosage: 50 MG
  8. TRAMADOL [Concomitant]
     Active Substance: TRAMADOL
  9. ZOPICLONE [Concomitant]
     Active Substance: ZOPICLONE
     Dosage: 7.5 MG
  10. OMEPRAZOLE [Concomitant]
     Active Substance: OMEPRAZOLE
     Dosage: 20 MG
  11. SILDENAFIL [Concomitant]
     Active Substance: SILDENAFIL
     Dosage: 25 MG
  12. ACETAMINOPHEN [Concomitant]
     Active Substance: ACETAMINOPHEN
     Dosage: 500 MG
  13. CALCIUM CARBONATE\CHOLECALCIFEROL [Concomitant]
     Active Substance: CALCIUM CARBONATE\CHOLECALCIFEROL
     Dosage: 1500 MG
  14. SALAMOL INHALER [Concomitant]
     Dosage: 100 MG
  15. NAPROXEN [Concomitant]
     Active Substance: NAPROXEN
     Dosage: 250 MG
  16. CHOLECALCIFEROL [Concomitant]
     Active Substance: CHOLECALCIFEROL
     Dosage: 400 IU
  17. AMLODIPINE [Concomitant]
     Active Substance: AMLODIPINE BESYLATE
     Dosage: 5 MG
  18. LIDOCAINE PLASTER [Concomitant]
     Dosage: PLASTER
  19. CLINITAS [Concomitant]
     Dosage: 6.4 (UNIT NOT REPORTED)
  20. AMITRIPTYLINE [Concomitant]
     Active Substance: AMITRIPTYLINE
     Dosage: 10 MG
  21. LIDOCAINE [Concomitant]
     Active Substance: LIDOCAINE
     Dosage: 5 PERCENT
  22. BORON [Concomitant]
     Active Substance: BORON
     Dosage: 3 MG
  23. ACETYLCYSTEINE [Concomitant]
     Active Substance: ACETYLCYSTEINE
     Dosage: 600 MG
  24. HERBALS\SAW PALMETTO [Concomitant]
     Active Substance: HERBALS\SAW PALMETTO
     Dosage: 320 MG
  25. ARGININE [Concomitant]
     Active Substance: ARGININE
     Dosage: 1000 MG
  26. GABAPENTIN [Concomitant]
     Active Substance: GABAPENTIN
     Dosage: 100 MG
  27. CITALOPRAM [Concomitant]
     Active Substance: CITALOPRAM HYDROBROMIDE
  28. VITAMIN C [Concomitant]
     Active Substance: ASCORBIC ACID
  29. PROBIOTICS NOS [Concomitant]
     Active Substance: PROBIOTICS NOS
  30. CALCIUM [Concomitant]
     Active Substance: CALCIUM
  31. VITAMINS [Concomitant]
     Active Substance: VITAMINS
  32. LINEAVI [Concomitant]
  33. HERBALS\TURMERIC [Concomitant]
     Active Substance: HERBALS\TURMERIC
  34. COENZYME Q10 [Concomitant]
     Active Substance: DIETARY SUPPLEMENT\UBIDECARENONE
  35. METHYLPEN [Concomitant]
  36. KRILL OIL [Concomitant]
     Active Substance: DIETARY SUPPLEMENT\KRILL OIL

REACTIONS (3)
  - Lenticular opacities [Unknown]
  - Cataract [Unknown]
  - Amino acid level increased [Unknown]

NARRATIVE: CASE EVENT DATE: 20150101
